FAERS Safety Report 16414966 (Version 1)
Quarter: 2019Q2

REPORT INFORMATION
  Report Type: Spontaneous
  Country: US (occurrence: US)
  Receive Date: 20190611
  Receipt Date: 20190611
  Transmission Date: 20190711
  Serious: No
  Sender: FDA-Public Use
  Company Number: US-BAYER-2019-112189

PATIENT
  Age: 67 Year
  Sex: Female
  Weight: 82 kg

DRUGS (2)
  1. GUTALAX [Concomitant]
  2. MIRALAX [Suspect]
     Active Substance: POLYETHYLENE GLYCOL 3350
     Dosage: UNK, 17G IN A 4-8 OZ OF WATER
     Route: 048
     Dates: start: 201905

REACTIONS (3)
  - Muscle spasms [Recovering/Resolving]
  - Gastric disorder [Recovering/Resolving]
  - Pain [Recovering/Resolving]
